FAERS Safety Report 16736383 (Version 3)
Quarter: 2019Q3

REPORT INFORMATION
  Report Type: Report from Study
  Country: US (occurrence: US)
  Receive Date: 20190823
  Receipt Date: 20190830
  Transmission Date: 20191005
  Serious: No
  Sender: FDA-Public Use
  Company Number: US-SA-2019SA236536

PATIENT
  Age: 7 Year
  Sex: Female

DRUGS (2)
  1. CAPLACIZUMAB-YHDP [Suspect]
     Active Substance: CAPLACIZUMAB-YHDP
     Indication: THROMBOTIC THROMBOCYTOPENIC PURPURA
     Dosage: 5.5 MG,QD
     Route: 058
     Dates: start: 20190821
  2. CAPLACIZUMAB-YHDP [Suspect]
     Active Substance: CAPLACIZUMAB-YHDP
     Indication: THROMBOTIC MICROANGIOPATHY
     Dosage: 5.5 MG, QD
     Route: 058
     Dates: start: 20190726

REACTIONS (5)
  - Off label use [Recovering/Resolving]
  - Product administered at inappropriate site [Unknown]
  - Contusion [Recovering/Resolving]
  - Incorrect dose administered [Recovering/Resolving]
  - Epistaxis [Recovering/Resolving]

NARRATIVE: CASE EVENT DATE: 20190808
